FAERS Safety Report 6578614-2 (Version None)
Quarter: 2010Q1

REPORT INFORMATION
  Report Type: 
  Country: None (occurrence: None)
  Receive Date: 20100211
  Receipt Date: 20100202
  Transmission Date: 20100710
  Serious: Yes (Other)
  Sender: FDA-Public Use
  Company Number: US-ABBOTT-09P-163-0611855-00

PATIENT
  Age: 19 Month
  Sex: Female
  Weight: 11 kg

DRUGS (8)
  1. RITONAVIR [Suspect]
     Indication: HIV INFECTION
     Route: 048
     Dates: start: 20080729, end: 20091027
  2. RITONAVIR [Suspect]
     Route: 048
     Dates: start: 20091109
  3. ATAZANAVIR [Concomitant]
     Indication: HIV INFECTION
     Route: 048
     Dates: start: 20080729, end: 20091027
  4. ATAZANAVIR [Concomitant]
     Route: 048
     Dates: start: 20091109
  5. LAMIVUDINE [Concomitant]
     Indication: DRUG USE FOR UNKNOWN INDICATION
     Route: 048
     Dates: start: 20080729, end: 20091027
  6. LAMIVUDINE [Concomitant]
     Route: 048
     Dates: start: 20091109
  7. ZIDOVUDINE [Concomitant]
     Indication: DRUG USE FOR UNKNOWN INDICATION
     Route: 048
     Dates: start: 20080729, end: 20091027
  8. ZIDOVUDINE [Concomitant]
     Route: 048
     Dates: start: 20091109

REACTIONS (4)
  - ARTHRALGIA [None]
  - BLOOD ALKALINE PHOSPHATASE INCREASED [None]
  - PRURITUS [None]
  - RASH [None]
